FAERS Safety Report 6444668-7 (Version None)
Quarter: 2009Q4

REPORT INFORMATION
  Report Type: 
  Country: None (occurrence: None)
  Receive Date: 20091116
  Receipt Date: 20091116
  Transmission Date: 20100525
  Serious: Yes (Life-Threatening, Disabling)
  Sender: FDA-Public Use
  Company Number: None

PATIENT
  Sex: Female
  Weight: 105.6881 kg

DRUGS (12)
  1. AMOXICILLIN AND CLAVULANATE POTASSIUM [Suspect]
     Indication: PYREXIA
     Dosage: 875 MG 2X DAY 047 ONLY TOOK 11 AND THEN STOPPED
     Dates: start: 20090729
  2. AMOXICILLIN AND CLAVULANATE POTASSIUM [Suspect]
     Indication: WHITE BLOOD CELL COUNT INCREASED
     Dosage: 875 MG 2X DAY 047 ONLY TOOK 11 AND THEN STOPPED
     Dates: start: 20090729
  3. AMOXICILLIN AND CLAVULANATE POTASSIUM [Suspect]
     Indication: PYREXIA
     Dosage: 875 MG 2X DAY 047 ONLY TOOK 11 AND THEN STOPPED
     Dates: start: 20090730
  4. AMOXICILLIN AND CLAVULANATE POTASSIUM [Suspect]
     Indication: WHITE BLOOD CELL COUNT INCREASED
     Dosage: 875 MG 2X DAY 047 ONLY TOOK 11 AND THEN STOPPED
     Dates: start: 20090730
  5. AMOXICILLIN AND CLAVULANATE POTASSIUM [Suspect]
     Indication: PYREXIA
     Dosage: 875 MG 2X DAY 047 ONLY TOOK 11 AND THEN STOPPED
     Dates: start: 20090731
  6. AMOXICILLIN AND CLAVULANATE POTASSIUM [Suspect]
     Indication: WHITE BLOOD CELL COUNT INCREASED
     Dosage: 875 MG 2X DAY 047 ONLY TOOK 11 AND THEN STOPPED
     Dates: start: 20090731
  7. AMOXICILLIN AND CLAVULANATE POTASSIUM [Suspect]
     Indication: PYREXIA
     Dosage: 875 MG 2X DAY 047 ONLY TOOK 11 AND THEN STOPPED
     Dates: start: 20090801
  8. AMOXICILLIN AND CLAVULANATE POTASSIUM [Suspect]
     Indication: WHITE BLOOD CELL COUNT INCREASED
     Dosage: 875 MG 2X DAY 047 ONLY TOOK 11 AND THEN STOPPED
     Dates: start: 20090801
  9. AMOXICILLIN AND CLAVULANATE POTASSIUM [Suspect]
     Indication: PYREXIA
     Dosage: 875 MG 2X DAY 047 ONLY TOOK 11 AND THEN STOPPED
     Dates: start: 20090802
  10. AMOXICILLIN AND CLAVULANATE POTASSIUM [Suspect]
     Indication: WHITE BLOOD CELL COUNT INCREASED
     Dosage: 875 MG 2X DAY 047 ONLY TOOK 11 AND THEN STOPPED
     Dates: start: 20090802
  11. AMOXICILLIN AND CLAVULANATE POTASSIUM [Suspect]
     Indication: PYREXIA
     Dosage: 875 MG 2X DAY 047 ONLY TOOK 11 AND THEN STOPPED
     Dates: start: 20090803
  12. AMOXICILLIN AND CLAVULANATE POTASSIUM [Suspect]
     Indication: WHITE BLOOD CELL COUNT INCREASED
     Dosage: 875 MG 2X DAY 047 ONLY TOOK 11 AND THEN STOPPED
     Dates: start: 20090803

REACTIONS (10)
  - ABDOMINAL PAIN [None]
  - CHROMATURIA [None]
  - DECREASED APPETITE [None]
  - FATIGUE [None]
  - FLATULENCE [None]
  - HYPERSOMNIA [None]
  - INSOMNIA [None]
  - JAUNDICE [None]
  - PRURITUS [None]
  - VOMITING [None]
